FAERS Safety Report 7548368-1 (Version None)
Quarter: 2011Q2

REPORT INFORMATION
  Report Type: 
  Country: None (occurrence: None)
  Receive Date: 20110608
  Receipt Date: 20110524
  Transmission Date: 20111010
  Serious: Yes (Hospitalization)
  Sender: FDA-Public Use
  Company Number: 918810

PATIENT
  Age: 12 Year
  Sex: Female

DRUGS (6)
  1. (ANTIVENIN /00222301/) [Concomitant]
  2. ACETAMINOPHEN [Concomitant]
  3. (FENTANYL CITRALE) [Concomitant]
  4. (METHOXYFLURANE) [Concomitant]
  5. MORPHINE SULFATE [Suspect]
     Indication: ARTHROPOD STING
     Dosage: 2.5 MG, 6 DOSES ONLY (INTRAVENOUS (NOT OTHERWISE SPECIFIED)
     Route: 042
     Dates: start: 20110423, end: 20110423
  6. (PRFDNISOLONE) [Concomitant]

REACTIONS (1)
  - PANCREATITIS [None]
